FAERS Safety Report 7303912-4 (Version None)
Quarter: 2011Q1

REPORT INFORMATION
  Report Type: 
  Country: None (occurrence: None)
  Receive Date: 20110221
  Receipt Date: 20110209
  Transmission Date: 20110831
  Serious: Yes (Other)
  Sender: FDA-Public Use
  Company Number: US-ROCHE-759486

PATIENT
  Sex: Female
  Weight: 39.5 kg

DRUGS (7)
  1. ZANTAC [Suspect]
     Indication: ABDOMINAL PAIN
     Dosage: THER INDICATION: NAUSEA
     Route: 042
     Dates: start: 20101224
  2. XOPENEX [Suspect]
     Indication: PNEUMONIA
     Dosage: DOSING AMT: 0.63 MG/3ML TAKEN FOR ASTHMA
     Route: 055
     Dates: start: 20101223, end: 20101224
  3. XOPENEX [Suspect]
     Dosage: DOSING AMT: 0.63 MG/3ML
     Route: 055
     Dates: start: 20101225, end: 20101226
  4. SOLU-MEDROL [Suspect]
     Indication: ASTHMA
     Route: 042
     Dates: start: 20101223
  5. ALBUTEROL [Concomitant]
  6. ROCEPHIN [Suspect]
     Indication: PNEUMONIA
     Route: 042
     Dates: start: 20101223
  7. XOPENEX [Suspect]
     Dosage: DOSING AMT: 1.25 MG/3ML
     Route: 055
     Dates: start: 20101224, end: 20101225

REACTIONS (9)
  - FEAR [None]
  - WHEEZING [None]
  - VISUAL IMPAIRMENT [None]
  - DRUG INEFFECTIVE [None]
  - NAUSEA [None]
  - ABDOMINAL PAIN [None]
  - HALLUCINATION, VISUAL [None]
  - VISION BLURRED [None]
  - PANIC REACTION [None]
